FAERS Safety Report 8017136-9 (Version None)
Quarter: 2012Q1

REPORT INFORMATION
  Report Type: 
  Country: None (occurrence: None)
  Receive Date: 20120102
  Receipt Date: 20111226
  Transmission Date: 20120608
  Serious: Yes (Hospitalization, Other)
  Sender: FDA-Public Use
  Company Number: JP-ROCHE-1026615

PATIENT
  Sex: Female

DRUGS (6)
  1. RANIBIZUMAB [Suspect]
     Indication: AGE-RELATED MACULAR DEGENERATION
     Route: 050
     Dates: start: 20090618
  2. NORVASC [Concomitant]
  3. DEPAS [Concomitant]
  4. RANIBIZUMAB [Suspect]
     Dates: start: 20090723
  5. RANIBIZUMAB [Suspect]
     Dosage: DROPPED OUT OF STUDY
     Dates: start: 20100813
  6. CILOSTAZOL [Concomitant]

REACTIONS (2)
  - BREAST CANCER [None]
  - DEMENTIA [None]
